FAERS Safety Report 5809035-5 (Version None)
Quarter: 2008Q3

REPORT INFORMATION
  Report Type: 
  Country: None (occurrence: None)
  Receive Date: 20080714
  Receipt Date: 20080710
  Transmission Date: 20090109
  Serious: Yes (Other)
  Sender: FDA-Public Use
  Company Number: JP-BRISTOL-MYERS SQUIBB COMPANY-14257802

PATIENT
  Age: 22 Year
  Sex: Female

DRUGS (3)
  1. CYCLOPHOSPHAMIDE [Suspect]
     Indication: MEDULLOBLASTOMA
  2. CARBOPLATIN [Suspect]
     Indication: MEDULLOBLASTOMA
  3. RADIOTHERAPY [Suspect]
     Indication: MEDULLOBLASTOMA

REACTIONS (1)
  - ENCEPHALITIS HERPES [None]
